FAERS Safety Report 8499916 (Version 2)
Quarter: 2012Q4

REPORT INFORMATION
  Report Type: 
  Country: FR (occurrence: FR)
  Receive Date: 20120409
  Receipt Date: 20120914
  Transmission Date: 20130627
  Serious: Yes (Death, Hospitalization, Other)
  Sender: FDA-Public Use
  Company Number: PHHY2012FR013827

PATIENT
  Sex: Female

DRUGS (2)
  1. VOLTARENE LP [Suspect]
     Dosage: 75 mg, UNK
     Route: 048
  2. ACE INHIBITORS [Suspect]

REACTIONS (3)
  - Death [Fatal]
  - Renal failure acute [Recovered/Resolved]
  - Drug interaction [Unknown]
